FAERS Safety Report 9181811 (Version 1)
Quarter: 2013Q1

REPORT INFORMATION
  Report Type: Spontaneous
  Country: US (occurrence: US)
  Receive Date: 20130322
  Receipt Date: 20130322
  Transmission Date: 20140127
  Serious: No
  Sender: FDA-Public Use
  Company Number: US-009507513-1303USA010450

PATIENT
  Sex: Male

DRUGS (2)
  1. NUVARING [Suspect]
     Indication: CONTRACEPTION
     Dosage: UNK
     Route: 064
     Dates: start: 200510, end: 200910
  2. NUVARING [Suspect]
     Indication: MENORRHAGIA

REACTIONS (1)
  - Unintended pregnancy [Recovered/Resolved]
